FAERS Safety Report 25710318 (Version 1)
Quarter: 2025Q3

REPORT INFORMATION
  Report Type: Spontaneous
  Country: US (occurrence: US)
  Receive Date: 20250821
  Receipt Date: 20250821
  Transmission Date: 20251020
  Serious: No
  Sender: MYLAN
  Company Number: US-MYLANLABS-2025M1067708

PATIENT
  Age: 79 Year
  Sex: Male
  Weight: 122.47 kg

DRUGS (8)
  1. WIXELA INHUB [Suspect]
     Active Substance: FLUTICASONE PROPIONATE\SALMETEROL XINAFOATE
     Indication: Asthma
     Dosage: 250 PER 50 MICROGRAM BID (TWO PUFFS DAILY, ONE IN THE MORNING AND ONE AT NIGHT)
     Route: 055
  2. WIXELA INHUB [Suspect]
     Active Substance: FLUTICASONE PROPIONATE\SALMETEROL XINAFOATE
     Dosage: 250 PER 50 MICROGRAM BID (TWO PUFFS DAILY, ONE IN THE MORNING AND ONE AT NIGHT)
  3. WIXELA INHUB [Suspect]
     Active Substance: FLUTICASONE PROPIONATE\SALMETEROL XINAFOATE
     Dosage: 250 PER 50 MICROGRAM BID (TWO PUFFS DAILY, ONE IN THE MORNING AND ONE AT NIGHT)
  4. WIXELA INHUB [Suspect]
     Active Substance: FLUTICASONE PROPIONATE\SALMETEROL XINAFOATE
     Dosage: 250 PER 50 MICROGRAM BID (TWO PUFFS DAILY, ONE IN THE MORNING AND ONE AT NIGHT)
     Route: 055
  5. WIXELA INHUB [Suspect]
     Active Substance: FLUTICASONE PROPIONATE\SALMETEROL XINAFOATE
     Dosage: 250 PER 50 MICROGRAM BID (TWO PUFFS DAILY, ONE IN THE MORNING AND ONE AT NIGHT)
     Route: 055
  6. WIXELA INHUB [Suspect]
     Active Substance: FLUTICASONE PROPIONATE\SALMETEROL XINAFOATE
     Dosage: 250 PER 50 MICROGRAM BID (TWO PUFFS DAILY, ONE IN THE MORNING AND ONE AT NIGHT)
  7. WIXELA INHUB [Suspect]
     Active Substance: FLUTICASONE PROPIONATE\SALMETEROL XINAFOATE
     Dosage: 250 PER 50 MICROGRAM BID (TWO PUFFS DAILY, ONE IN THE MORNING AND ONE AT NIGHT)
  8. WIXELA INHUB [Suspect]
     Active Substance: FLUTICASONE PROPIONATE\SALMETEROL XINAFOATE
     Dosage: 250 PER 50 MICROGRAM BID (TWO PUFFS DAILY, ONE IN THE MORNING AND ONE AT NIGHT)
     Route: 055

REACTIONS (4)
  - Product dose omission issue [Unknown]
  - Device delivery system issue [Unknown]
  - Device mechanical issue [Unknown]
  - Device malfunction [Unknown]

NARRATIVE: CASE EVENT DATE: 20250806
